FAERS Safety Report 7702928-3 (Version None)
Quarter: 2011Q3

REPORT INFORMATION
  Report Type: 
  Country: None (occurrence: None)
  Receive Date: 20110823
  Receipt Date: 20110816
  Transmission Date: 20111222
  Serious: Yes (Death, Hospitalization, Other)
  Sender: FDA-Public Use
  Company Number: US-AMGEN-USASP2011041107

PATIENT
  Age: 57 Year
  Sex: Male

DRUGS (4)
  1. IMMUNOGLOBULINS [Concomitant]
  2. NPLATE [Suspect]
     Indication: IDIOPATHIC THROMBOCYTOPENIC PURPURA
     Dosage: 4.5 A?G/KG, UNK
     Dates: start: 20090929, end: 20091123
  3. NEUPOGEN [Suspect]
     Indication: NEUTROPENIA
  4. CORTICOSTEROIDS [Concomitant]

REACTIONS (11)
  - MYELOID LEUKAEMIA [None]
  - NORMOCHROMIC NORMOCYTIC ANAEMIA [None]
  - PANCYTOPENIA [None]
  - BLOOD IRON DECREASED [None]
  - RASH ERYTHEMATOUS [None]
  - CHEMOTHERAPY [None]
  - BLAST CELLS PRESENT [None]
  - THROMBOCYTOPENIA [None]
  - CELLULITIS [None]
  - ADVERSE DRUG REACTION [None]
  - MUSCULAR WEAKNESS [None]
